FAERS Safety Report 8432269-0 (Version None)
Quarter: 2012Q2

REPORT INFORMATION
  Report Type: 
  Country: None (occurrence: None)
  Receive Date: 20120613
  Receipt Date: 20120607
  Transmission Date: 20120825
  Serious: Yes (Other)
  Sender: FDA-Public Use
  Company Number: PHHY2012CH048716

PATIENT
  Age: 58 Year
  Sex: Female
  Weight: 63 kg

DRUGS (6)
  1. VOLTAREN [Suspect]
     Indication: PAIN
     Dosage: 100 MG DAILY
     Route: 048
     Dates: start: 19780101
  2. CALCIMAGON [Suspect]
     Dosage: 500 MG, UNK
     Route: 048
     Dates: start: 20120225
  3. SIMVASTATIN [Suspect]
     Dosage: 20 MG, UNK
     Route: 048
     Dates: start: 20101028
  4. OPIOIDS [Concomitant]
     Indication: POLYARTHRITIS
  5. METHOTREXATE SODIUM [Suspect]
     Indication: POLYARTHRITIS
     Dosage: 20 MG, PER WEEK
     Route: 058
     Dates: start: 20100726
  6. ACTIQ [Concomitant]
     Indication: PAIN
     Dosage: 600 UG DAILY
     Route: 002
     Dates: start: 20120410

REACTIONS (2)
  - DIARRHOEA [None]
  - WEIGHT DECREASED [None]
